FAERS Safety Report 6147654-X (Version None)
Quarter: 2009Q2

REPORT INFORMATION
  Report Type: 
  Country: None (occurrence: None)
  Receive Date: 20090408
  Receipt Date: 20090325
  Transmission Date: 20091009
  Serious: Yes (Other)
  Sender: FDA-Public Use
  Company Number: PHHY2009BR13207

PATIENT
  Sex: Female

DRUGS (6)
  1. DIOVAN [Suspect]
     Dosage: 2 TABLETS DAILY
  2. DIOVAN HCT [Suspect]
     Dosage: 1 TABLET DAILY
  3. VASTAREL [Concomitant]
     Indication: ISCHAEMIA
     Dosage: ONE TABLET EVERY 12 HOURS
     Dates: start: 20090319
  4. NATRILIX - SLOW RELEASE [Concomitant]
     Dosage: ONE TABLET AT LUNCH TIME
     Dates: start: 20090319
  5. ADALAT [Concomitant]
     Dosage: ONE TABLET AT NIGHT
     Dates: start: 20090319
  6. SIMVASTATIN [Concomitant]
     Dosage: ONE TABLET AT NIGHT
     Dates: start: 20090319

REACTIONS (2)
  - BLOOD PRESSURE INCREASED [None]
  - MYOCARDIAL ISCHAEMIA [None]
